FAERS Safety Report 5450088-4 (Version None)
Quarter: 2007Q3

REPORT INFORMATION
  Report Type: 
  Country: None (occurrence: None)
  Receive Date: 20070912
  Receipt Date: 20070905
  Transmission Date: 20080115
  Serious: Yes (Hospitalization)
  Sender: FDA-Public Use
  Company Number: US-MERCK-0709USA00705

PATIENT
  Age: 57 Year
  Sex: Female

DRUGS (14)
  1. PEPCID [Suspect]
     Indication: GASTROOESOPHAGEAL REFLUX DISEASE
     Route: 048
     Dates: start: 19990101
  2. PEPCID [Suspect]
     Route: 048
  3. PEPCID [Suspect]
     Route: 048
  4. PEPCID [Suspect]
     Indication: HIATUS HERNIA
     Route: 048
     Dates: start: 19990101
  5. PEPCID [Suspect]
     Route: 048
  6. PEPCID [Suspect]
     Route: 048
  7. AVANDIA [Concomitant]
     Route: 065
  8. LEVOTHROID [Concomitant]
     Route: 065
  9. ZYRTEC [Concomitant]
     Route: 065
  10. VERAPAMIL [Concomitant]
     Route: 065
  11. HYDROCHLOROTHIAZIDE [Concomitant]
     Route: 065
  12. VICODIN [Concomitant]
     Route: 065
  13. VESICARE [Concomitant]
     Route: 065
  14. FAMOTIDINE [Concomitant]
     Route: 048

REACTIONS (1)
  - CHEST PAIN [None]
